FAERS Safety Report 10630346 (Version 1)
Quarter: 2014Q4

REPORT INFORMATION
  Report Type: Spontaneous
  Country: US (occurrence: US)
  Receive Date: 20141205
  Receipt Date: 20141205
  Transmission Date: 20150529
  Serious: No
  Sender: FDA-Public Use
  Company Number: US-BRISTOL-MYERS SQUIBB COMPANY-21361746

PATIENT
  Age: 43 Year
  Sex: Female

DRUGS (3)
  1. DICLOFENAC [Concomitant]
     Active Substance: DICLOFENAC
  2. ABILIFY [Suspect]
     Active Substance: ARIPIPRAZOLE
     Dosage: DOSE INCREASED: 10MG/D
     Dates: start: 201407
  3. IBUPROFEN. [Concomitant]
     Active Substance: IBUPROFEN

REACTIONS (4)
  - Hallucination [Not Recovered/Not Resolved]
  - Pain [Not Recovered/Not Resolved]
  - Drug interaction [Not Recovered/Not Resolved]
  - Somnolence [Not Recovered/Not Resolved]
